FAERS Safety Report 12840005 (Version 2)
Quarter: 2016Q4

REPORT INFORMATION
  Report Type: Spontaneous
  Country: ES (occurrence: ES)
  Receive Date: 20161012
  Receipt Date: 20161114
  Transmission Date: 20170207
  Serious: Yes (Other)
  Sender: FDA-Public Use
  Company Number: ES-PFIZER INC-2016461370

PATIENT

DRUGS (3)
  1. ZAVEDOS [Suspect]
     Active Substance: IDARUBICIN
     Indication: ACUTE MYELOID LEUKAEMIA
     Dosage: 12 MG/M2, UNK
  2. ZAVEDOS [Suspect]
     Active Substance: IDARUBICIN
     Dosage: 12 MG/M2, UNK
  3. CYTARABINE. [Concomitant]
     Active Substance: CYTARABINE

REACTIONS (1)
  - Hepatotoxicity [Unknown]
